FAERS Safety Report 9248953 (Version 1)
Quarter: 2013Q2

REPORT INFORMATION
  Report Type: Spontaneous
  Country: US (occurrence: None)
  Receive Date: 20130419
  Receipt Date: 20130419
  Transmission Date: 20140414
  Serious: Yes (Hospitalization)
  Sender: FDA-Public Use
  Company Number: None

PATIENT
  Age: 64 Year
  Sex: Male
  Weight: 156.7 kg

DRUGS (2)
  1. HEPARIN [Suspect]
     Dosage: 2500 UNITS
     Route: 042
     Dates: start: 20130221, end: 20130222
  2. CLOPIDOGREL [Suspect]
     Route: 048
     Dates: start: 20130222, end: 20130301

REACTIONS (1)
  - Retroperitoneal haemorrhage [None]
